FAERS Safety Report 6482412-8 (Version None)
Quarter: 2009Q4

REPORT INFORMATION
  Report Type: 
  Country: None (occurrence: None)
  Receive Date: 20091208
  Receipt Date: 20090706
  Transmission Date: 20100525
  Serious: No
  Sender: FDA-Public Use
  Company Number: US-AMGEN-TCS346906

PATIENT
  Sex: Female
  Weight: 65.8 kg

DRUGS (5)
  1. ENBREL [Suspect]
     Indication: RHEUMATOID ARTHRITIS
     Route: 058
     Dates: start: 20040101
  2. PLAQUENIL [Concomitant]
     Route: 048
  3. SYNTHROID [Concomitant]
  4. FOSAMAX [Concomitant]
  5. LITHIUM [Concomitant]

REACTIONS (4)
  - ARTHRITIS [None]
  - BURNING SENSATION [None]
  - INJECTION SITE PAIN [None]
  - PAIN [None]
